FAERS Safety Report 7366247-X (Version None)
Quarter: 2011Q1

REPORT INFORMATION
  Report Type: 
  Country: None (occurrence: None)
  Receive Date: 20110322
  Receipt Date: 20110308
  Transmission Date: 20110831
  Serious: Yes (Hospitalization)
  Sender: FDA-Public Use
  Company Number: US-JNJFOC-20100508731

PATIENT
  Age: 14 Year
  Sex: Female
  Weight: 37.9 kg

DRUGS (4)
  1. REMICADE [Suspect]
     Route: 042
     Dates: start: 20081231
  2. MESALAMINE [Concomitant]
  3. HUMIRA [Concomitant]
  4. REMICADE [Suspect]
     Indication: INFLAMMATORY BOWEL DISEASE
     Dosage: TOTAL 10 DOSES
     Route: 042
     Dates: start: 20081231

REACTIONS (2)
  - PANCREATITIS [None]
  - INFLAMMATORY BOWEL DISEASE [None]
